FAERS Safety Report 9240450 (Version 4)
Quarter: 2013Q3

REPORT INFORMATION
  Report Type: Spontaneous
  Country: FR (occurrence: None)
  Receive Date: 20130412
  Receipt Date: 20130731
  Transmission Date: 20140515
  Serious: Yes (Hospitalization, Other)
  Sender: FDA-Public Use
  Company Number: 2013035164

PATIENT
  Age: 24 Month
  Sex: Female

DRUGS (6)
  1. PRIVIGEN [Suspect]
     Indication: KAWASAKI^S DISEASE
     Dosage: 24 G TOTAL, 2G/KG/DAY; MAX. INFUSION RATE: 0.06ML/MIN
     Route: 042
     Dates: start: 20130308, end: 20130308
  2. AMOXICILLINE (AMOXICILLIN TRIHYDRATE) [Concomitant]
     Indication: VIRAL INFECTION
     Route: 048
     Dates: start: 20130305, end: 20130308
  3. ASPIRIN (ACETYLSALICYLIC ACID) [Concomitant]
  4. DOLIPRANE (PARACETAMOL) [Concomitant]
  5. MOPRAL (OMEPRAZOLE) [Concomitant]
  6. PANTOPRAZOLE (PANTOPRAZOLE) [Concomitant]
     Indication: VIRAL INFECTION

REACTIONS (4)
  - Haemolytic anaemia [None]
  - Coombs test positive [None]
  - Tachycardia [None]
  - Pallor [None]
